FAERS Safety Report 6004771-2 (Version None)
Quarter: 2008Q4

REPORT INFORMATION
  Report Type: 
  Country: None (occurrence: None)
  Receive Date: 20081216
  Receipt Date: 20081205
  Transmission Date: 20090506
  Serious: Yes (Other)
  Sender: FDA-Public Use
  Company Number: US-SANOFI-SYNTHELABO-A03200800639

PATIENT
  Sex: Male

DRUGS (3)
  1. AMBIEN [Suspect]
     Indication: INSOMNIA
     Dosage: TWO TO FOUR PILLS AT NIGHT
     Route: 048
     Dates: start: 20070501
  2. AMBIEN [Suspect]
     Indication: MALAISE
     Dosage: TWO TO FOUR PILLS AT NIGHT
     Route: 048
     Dates: start: 20070501
  3. AMBIEN [Suspect]
     Indication: KNEE OPERATION
     Dosage: TWO TO FOUR PILLS AT NIGHT
     Route: 048
     Dates: start: 20070501

REACTIONS (11)
  - ABNORMAL BEHAVIOUR [None]
  - AMNESIA [None]
  - BALANCE DISORDER [None]
  - DISORIENTATION [None]
  - DRUG ABUSE [None]
  - DYSARTHRIA [None]
  - GAIT DISTURBANCE [None]
  - IMPAIRED DRIVING ABILITY [None]
  - ROAD TRAFFIC ACCIDENT [None]
  - TRANCE [None]
  - VISION BLURRED [None]
